FAERS Safety Report 15898775 (Version 3)
Quarter: 2019Q3

REPORT INFORMATION
  Report Type: Spontaneous
  Country: PT (occurrence: PT)
  Receive Date: 20190201
  Receipt Date: 20190711
  Transmission Date: 20191004
  Serious: Yes (Death, Hospitalization, Other)
  Sender: FDA-Public Use
  Company Number: PT-AUROBINDO-AUR-APL-2019-004362

PATIENT

DRUGS (7)
  1. VANCOMYCIN [Suspect]
     Active Substance: VANCOMYCIN
     Indication: PULMONARY SEPSIS
     Dosage: UNK
     Route: 065
  2. VANCOMYCIN [Suspect]
     Active Substance: VANCOMYCIN
     Indication: STAPHYLOCOCCUS TEST POSITIVE
  3. LEVOFLOXACIN. [Suspect]
     Active Substance: LEVOFLOXACIN
     Indication: STAPHYLOCOCCUS TEST POSITIVE
  4. FLUCLOXACILIN [Suspect]
     Active Substance: FLUCLOXACILLIN
     Indication: STAPHYLOCOCCUS TEST POSITIVE
  5. FLUCLOXACILIN [Suspect]
     Active Substance: FLUCLOXACILLIN
     Indication: PULMONARY SEPSIS
     Dosage: UNK
     Route: 065
  6. LEVOFLOXACIN. [Suspect]
     Active Substance: LEVOFLOXACIN
     Indication: STAPHYLOCOCCAL INFECTION
  7. LEVOFLOXACIN. [Suspect]
     Active Substance: LEVOFLOXACIN
     Indication: PULMONARY SEPSIS
     Dosage: UNK
     Route: 065

REACTIONS (3)
  - Dyspnoea [Fatal]
  - Aortitis [Fatal]
  - Drug ineffective [Fatal]
